FAERS Safety Report 5407146-X (Version None)
Quarter: 2007Q3

REPORT INFORMATION
  Report Type: 
  Country: None (occurrence: None)
  Receive Date: 20070807
  Receipt Date: 20070806
  Transmission Date: 20080115
  Serious: Yes (Other)
  Sender: FDA-Public Use
  Company Number: A0668020A

PATIENT
  Age: 30 Year

DRUGS (1)
  1. AQUAFRESH ALL WITH TARTAR CONTROL TOOTHPASTE TUBE [Suspect]
     Indication: DRUG USE FOR UNKNOWN INDICATION

REACTIONS (3)
  - ANAPHYLACTIC REACTION [None]
  - PHARYNGEAL OEDEMA [None]
  - THROAT TIGHTNESS [None]
